FAERS Safety Report 8035681-7 (Version None)
Quarter: 2012Q1

REPORT INFORMATION
  Report Type: 
  Country: None (occurrence: None)
  Receive Date: 20120111
  Receipt Date: 20120105
  Transmission Date: 20120608
  Serious: Yes (Other)
  Sender: FDA-Public Use
  Company Number: US-JNJFOC-20111110043

PATIENT
  Sex: Female
  Weight: 72.58 kg

DRUGS (2)
  1. ROGAINE EXTRA STRENGTH (FOR MEN) [Suspect]
     Indication: ALOPECIA
     Dosage: AS DIRECTED, FOR ABOUT THREE YEARS
     Route: 061
     Dates: start: 20080416, end: 20111120
  2. ROGAINE EXTRA STRENGTH (FOR MEN) [Suspect]
     Route: 061

REACTIONS (4)
  - SEBORRHOEIC DERMATITIS [None]
  - PRODUCT QUALITY ISSUE [None]
  - UNDERDOSE [None]
  - WRONG DRUG ADMINISTERED [None]
